FAERS Safety Report 19673788 (Version 1)
Quarter: 2021Q3

REPORT INFORMATION
  Report Type: Spontaneous
  Country: US (occurrence: US)
  Receive Date: 20210806
  Receipt Date: 20210806
  Transmission Date: 20211014
  Serious: No
  Sender: FDA-Public Use
  Company Number: None

PATIENT
  Age: 74 Year
  Sex: Female
  Weight: 124.74 kg

DRUGS (1)
  1. ERIVEDGE [Suspect]
     Active Substance: VISMODEGIB
     Indication: SKIN CANCER
     Dosage: 150MG 1 TABLET DAILY ORAL
     Route: 048
     Dates: start: 20210407

REACTIONS (3)
  - Syncope [None]
  - Ageusia [None]
  - Nausea [None]

NARRATIVE: CASE EVENT DATE: 202107
